FAERS Safety Report 11276159 (Version 1)
Quarter: 2015Q3

REPORT INFORMATION
  Report Type: Spontaneous
  Country: JP (occurrence: JP)
  Receive Date: 20150716
  Receipt Date: 20150716
  Transmission Date: 20151125
  Serious: Yes (Other)
  Sender: FDA-Public Use
  Company Number: JP-PFIZER INC-2015231238

PATIENT
  Sex: Male

DRUGS (1)
  1. XALATAN [Suspect]
     Active Substance: LATANOPROST
     Indication: GLAUCOMA
     Dosage: 1X/DAY
     Route: 061
     Dates: start: 2005

REACTIONS (4)
  - Arrhythmia [Unknown]
  - Extrasystoles [Unknown]
  - Heart rate increased [Unknown]
  - Blepharal pigmentation [Unknown]
